FAERS Safety Report 5989725-4 (Version None)
Quarter: 2008Q4

REPORT INFORMATION
  Report Type: 
  Country: None (occurrence: None)
  Receive Date: 20081208
  Receipt Date: 20081111
  Transmission Date: 20090506
  Serious: Yes (Hospitalization)
  Sender: FDA-Public Use
  Company Number: 2008BI032397

PATIENT
  Age: 63 Year
  Sex: Male

DRUGS (10)
  1. ZEVALIN [Suspect]
     Indication: MANTLE CELL LYMPHOMA
     Dosage: 22.5 MCI; 1X; IV
     Route: 042
     Dates: start: 20061201, end: 20061201
  2. RITUXIMAB [Concomitant]
  3. CYCLOPHOSPHAMIDE [Concomitant]
  4. DOXORUBICIN HCL [Concomitant]
  5. VINCRISTINE [Concomitant]
  6. DEXAMETHASONE [Concomitant]
  7. METHOTREXATE [Concomitant]
  8. CYTARABINE [Concomitant]
  9. OMEPRAZOLE [Concomitant]
  10. DIAZEPAM [Concomitant]

REACTIONS (4)
  - PRODUCTIVE COUGH [None]
  - PYREXIA [None]
  - RESPIRATORY DISORDER [None]
  - SPUTUM DISCOLOURED [None]
